FAERS Safety Report 19608362 (Version 3)
Quarter: 2021Q3

REPORT INFORMATION
  Report Type: Spontaneous
  Country: US (occurrence: US)
  Receive Date: 20210726
  Receipt Date: 20210913
  Transmission Date: 20211014
  Serious: Yes (Other)
  Sender: FDA-Public Use
  Company Number: US-ORGANON-O2107USA001931

PATIENT
  Age: 45 Year
  Sex: Female

DRUGS (1)
  1. NEXPLANON [Suspect]
     Active Substance: ETONOGESTREL
     Dosage: 1 IMPLANT, UPPER RIGHT NON?DOMINANT ARM
     Route: 059
     Dates: start: 201807, end: 20210727

REACTIONS (6)
  - Complication of device removal [Recovered/Resolved]
  - Wrong technique in device usage process [Unknown]
  - Weight increased [Unknown]
  - Device dislocation [Recovered/Resolved]
  - Scar [Unknown]
  - Device issue [Recovered/Resolved]

NARRATIVE: CASE EVENT DATE: 202107
